FAERS Safety Report 8456940-X (Version None)
Quarter: 2012Q2

REPORT INFORMATION
  Report Type: 
  Country: None (occurrence: None)
  Receive Date: 20120614
  Receipt Date: 20120524
  Transmission Date: 20120825
  Serious: Yes (Hospitalization)
  Sender: FDA-Public Use
  Company Number: 2012-265

PATIENT
  Age: 36 Year
  Sex: Female

DRUGS (4)
  1. VALPROATE SODIUM [Concomitant]
  2. CLOZAPINE [Suspect]
     Indication: SCHIZOPHRENIA
     Dosage: ORAL
     Route: 048
  3. LITHIUM CARBONATE [Concomitant]
  4. QUETIAPINE FUMARATE [Concomitant]

REACTIONS (15)
  - TUBULOINTERSTITIAL NEPHRITIS [None]
  - PROTEINURIA [None]
  - HEPATOMEGALY [None]
  - HEPATIC STEATOSIS [None]
  - TOXICITY TO VARIOUS AGENTS [None]
  - METABOLIC ACIDOSIS [None]
  - ILEUS [None]
  - MALAISE [None]
  - ABDOMINAL PAIN [None]
  - LEFT VENTRICULAR DYSFUNCTION [None]
  - RENAL FAILURE ACUTE [None]
  - PYREXIA [None]
  - HEADACHE [None]
  - SYSTEMIC INFLAMMATORY RESPONSE SYNDROME [None]
  - C-REACTIVE PROTEIN INCREASED [None]
